FAERS Safety Report 4931260-6 (Version None)
Quarter: 2006Q1

REPORT INFORMATION
  Report Type: 
  Country: None (occurrence: None)
  Receive Date: 20060302
  Receipt Date: 20051114
  Transmission Date: 20060701
  Serious: Yes (Hospitalization)
  Sender: FDA-Public Use
  Company Number: US-MERCK-0511USA02522

PATIENT
  Age: 57 Year
  Sex: Male
  Weight: 70 kg

DRUGS (9)
  1. VIOXX [Suspect]
     Indication: PAIN
     Route: 048
     Dates: start: 20010322, end: 20021104
  2. AMOXICILLIN [Concomitant]
     Indication: BACTERIAL INFECTION
     Route: 065
  3. LORTAB [Concomitant]
     Indication: PAIN
     Route: 065
     Dates: start: 20010101, end: 20010101
  4. NEURONTIN [Concomitant]
     Indication: PAIN
     Route: 065
     Dates: start: 20010101, end: 20010101
  5. OXYCONTIN [Concomitant]
     Indication: PAIN
     Route: 065
     Dates: start: 20010501, end: 20021101
  6. PREVACID [Concomitant]
     Indication: GASTRIC DISORDER
     Route: 065
  7. ROXICODONE [Concomitant]
     Indication: PAIN
     Route: 065
     Dates: start: 20010501, end: 20021101
  8. ASPIRIN [Concomitant]
     Route: 065
     Dates: start: 20021101
  9. ALTACE [Concomitant]
     Route: 065

REACTIONS (13)
  - ANGINA UNSTABLE [None]
  - ARTERIOSPASM CORONARY [None]
  - CORONARY ARTERY DISEASE [None]
  - DEEP VEIN THROMBOSIS [None]
  - DEHYDRATION [None]
  - EAR HAEMORRHAGE [None]
  - FALL [None]
  - GASTROOESOPHAGEAL REFLUX DISEASE [None]
  - HEAD INJURY [None]
  - HYPERTENSION [None]
  - MYOCARDIAL INFARCTION [None]
  - RENAL FAILURE [None]
  - RENAL TUBULAR NECROSIS [None]
